FAERS Safety Report 18288781 (Version 1)
Quarter: 2020Q3

REPORT INFORMATION
  Report Type: Spontaneous
  Country: US (occurrence: US)
  Receive Date: 20200920
  Receipt Date: 20200920
  Transmission Date: 20201103
  Serious: Yes (Other)
  Sender: FDA-Public Use
  Company Number: None

PATIENT
  Age: 71 Year
  Sex: Female
  Weight: 65.25 kg

DRUGS (9)
  1. MAGNESIUM [Concomitant]
     Active Substance: MAGNESIUM
  2. OMEGA FATTY ACIDS [Concomitant]
     Active Substance: FISH OIL\OMEGA-3 FATTY ACIDS
  3. PRIMAQUINE [Suspect]
     Active Substance: PRIMAQUINE PHOSPHATE
     Indication: MALARIA PROPHYLAXIS
     Dosage: ?          QUANTITY:14 TABLET(S);?
     Route: 048
     Dates: start: 20200331, end: 20200414
  4. CALCIUM ZINC [Concomitant]
  5. VITAMINE C [Concomitant]
     Active Substance: ASCORBIC ACID
  6. MULTIVITAMINE [Concomitant]
  7. LEVOTHYROXINE. [Concomitant]
     Active Substance: LEVOTHYROXINE
  8. IBERSARTAN?HCTZ [Concomitant]
     Active Substance: HYDROCHLOROTHIAZIDE\IRBESARTAN
  9. ESTRADIOL. [Concomitant]
     Active Substance: ESTRADIOL

REACTIONS (12)
  - Myositis [None]
  - Blood creatine phosphokinase increased [None]
  - Movement disorder [None]
  - Myalgia [None]
  - Myopathy [None]
  - Musculoskeletal disorder [None]
  - Muscle spasms [None]
  - Arthralgia [None]
  - Asthenia [None]
  - Toxicity to various agents [None]
  - Pain in extremity [None]
  - Gait disturbance [None]

NARRATIVE: CASE EVENT DATE: 20200408
